FAERS Safety Report 9137968 (Version 4)
Quarter: 2013Q2

REPORT INFORMATION
  Report Type: Spontaneous
  Country: US (occurrence: US)
  Receive Date: 20130304
  Receipt Date: 20130424
  Transmission Date: 20140414
  Serious: Yes (Death, Hospitalization, Other)
  Sender: FDA-Public Use
  Company Number: US-BAXTER-2013BAX007661

PATIENT
  Age: 68 Year
  Sex: Female

DRUGS (1)
  1. DIANEAL LOW CALCIUM [Suspect]
     Indication: PERITONEAL DIALYSIS
     Route: 033
     Dates: end: 20130303

REACTIONS (11)
  - Sepsis [Fatal]
  - Septic shock [Fatal]
  - Burn infection [Recovered/Resolved with Sequelae]
  - Decubitus ulcer [Recovering/Resolving]
  - Pneumoperitoneum [Unknown]
  - Atelectasis [Unknown]
  - Pneumonia [Unknown]
  - Nausea [Unknown]
  - Vomiting [Unknown]
  - Thermal burn [Recovered/Resolved with Sequelae]
  - Fall [Recovered/Resolved with Sequelae]
